FAERS Safety Report 7815804-2 (Version None)
Quarter: 2011Q4

REPORT INFORMATION
  Report Type: 
  Country: None (occurrence: None)
  Receive Date: 20111014
  Receipt Date: 20111006
  Transmission Date: 20120403
  Serious: Yes (Hospitalization)
  Sender: FDA-Public Use
  Company Number: JP-ROCHE-684433

PATIENT
  Sex: Female

DRUGS (24)
  1. ACTEMRA [Suspect]
     Route: 041
     Dates: start: 20090401, end: 20090401
  2. ACTEMRA [Suspect]
     Route: 042
     Dates: start: 20091021, end: 20091021
  3. ACTEMRA [Suspect]
     Route: 041
     Dates: start: 20081014, end: 20081014
  4. ACTEMRA [Suspect]
     Route: 041
     Dates: start: 20090107, end: 20090107
  5. ACTEMRA [Suspect]
     Route: 041
     Dates: start: 20090729, end: 20090729
  6. METHOTREXATE [Concomitant]
     Route: 048
  7. TRIMETHOPRIM [Concomitant]
     Route: 014
     Dates: start: 20080805, end: 20080805
  8. BENADRYL HCL [Concomitant]
     Dosage: DRUG REPORTED AS VENASMIN(DIPHENHYDRAMINE HYDROCHLORIDE)
     Route: 030
  9. CELECOXIB [Concomitant]
     Route: 048
     Dates: start: 20091021, end: 20100304
  10. ACTEMRA [Suspect]
     Route: 041
     Dates: start: 20090430, end: 20090430
  11. ACTEMRA [Suspect]
     Route: 041
     Dates: start: 20090603, end: 20090603
  12. SODIUM AUROTHIOMALATE [Concomitant]
     Dosage: DRUG NAME REPORTED AS SHIOSOL.
     Route: 030
  13. TRIMETHOPRIM [Concomitant]
     Route: 014
     Dates: start: 20080729, end: 20080729
  14. ACTEMRA [Suspect]
     Dosage: DISCONTINUED.
     Route: 041
     Dates: start: 20090826, end: 20090826
  15. KETOPROFEN [Concomitant]
     Dosage: DOSE FORM: TAPE, NOTE: PROPER QUANTITY.
     Route: 061
  16. ACTEMRA [Suspect]
     Route: 041
     Dates: start: 20081112, end: 20081112
  17. ACTEMRA [Suspect]
     Route: 041
     Dates: start: 20090304, end: 20090304
  18. ACTEMRA [Suspect]
     Route: 042
     Dates: start: 20090924, end: 20090924
  19. ALENDRONATE SODIUM [Concomitant]
     Route: 048
  20. ACTEMRA [Suspect]
     Indication: RHEUMATOID ARTHRITIS
     Route: 041
     Dates: start: 20080910, end: 20080910
  21. ACTEMRA [Suspect]
     Route: 041
     Dates: start: 20090204, end: 20090204
  22. ACTEMRA [Suspect]
     Route: 041
     Dates: start: 20090701, end: 20090701
  23. TRIMETHOPRIM [Concomitant]
     Route: 014
     Dates: start: 20080701, end: 20080701
  24. ACTEMRA [Suspect]
     Route: 041
     Dates: start: 20081210, end: 20081210

REACTIONS (4)
  - DIARRHOEA [None]
  - BLOOD CHOLESTEROL INCREASED [None]
  - ASPARTATE AMINOTRANSFERASE INCREASED [None]
  - PULMONARY TUBERCULOSIS [None]
